FAERS Safety Report 7123532-4 (Version None)
Quarter: 2010Q4

REPORT INFORMATION
  Report Type: 
  Country: None (occurrence: None)
  Receive Date: 20101125
  Receipt Date: 20101119
  Transmission Date: 20110411
  Serious: Yes (Other)
  Sender: FDA-Public Use
  Company Number: AU-PFIZER INC-2010152673

PATIENT
  Sex: Female

DRUGS (1)
  1. SYNAREL [Suspect]
     Dosage: UNK
     Dates: start: 20101101

REACTIONS (2)
  - BLOOD BLISTER [None]
  - DERMATITIS BULLOUS [None]
